FAERS Safety Report 11245420 (Version 1)
Quarter: 2015Q3

REPORT INFORMATION
  Report Type: Spontaneous
  Country: US (occurrence: US)
  Receive Date: 20150707
  Receipt Date: 20150707
  Transmission Date: 20151125
  Serious: No
  Sender: FDA-Public Use
  Company Number: US-BAYER-2015-372372

PATIENT
  Age: 55 Year
  Sex: Female

DRUGS (2)
  1. ULTRAVIST [Suspect]
     Active Substance: IOPROMIDE
     Indication: UROGRAM
  2. ULTRAVIST [Suspect]
     Active Substance: IOPROMIDE
     Indication: COMPUTERISED TOMOGRAM
     Dosage: UNK UNK, ONCE
     Dates: start: 20150701, end: 20150701

REACTIONS (3)
  - Oral discomfort [None]
  - Oral pruritus [None]
  - Sneezing [None]

NARRATIVE: CASE EVENT DATE: 20150701
